FAERS Safety Report 10274682 (Version 1)
Quarter: 2014Q3

REPORT INFORMATION
  Report Type: Spontaneous
  Country: FR (occurrence: FR)
  Receive Date: 20140702
  Receipt Date: 20140702
  Transmission Date: 20150326
  Serious: Yes (Hospitalization)
  Sender: FDA-Public Use
  Company Number: FR-EISAI INC-E2090-03374-SPO-FR

PATIENT
  Age: 50 Year
  Sex: Female

DRUGS (12)
  1. ZONEGRAN [Suspect]
     Active Substance: ZONISAMIDE
     Indication: EPILEPSY
     Dosage: 200 MG/DAY
     Route: 048
     Dates: start: 201405, end: 20140611
  2. RIVOTRIL [Suspect]
     Active Substance: CLONAZEPAM
     Dosage: 12 MG/DAY
     Route: 048
     Dates: start: 201406
  3. TEGRETOL LP [Suspect]
     Active Substance: CARBAMAZEPINE
     Dosage: PROGRESSIVELY INCREASED
     Route: 048
     Dates: start: 20140612, end: 201406
  4. TEGRETOL LP [Suspect]
     Active Substance: CARBAMAZEPINE
     Dosage: 800 MG/DAY
     Route: 048
     Dates: start: 201406
  5. RIVOTRIL [Suspect]
     Active Substance: CLONAZEPAM
     Dosage: PROGRESSIVELY REDUCED
     Route: 048
     Dates: start: 201405, end: 201405
  6. ZONEGRAN [Suspect]
     Active Substance: ZONISAMIDE
     Dosage: 100 MG/DAY
     Route: 048
     Dates: start: 20140613, end: 20140613
  7. RIVOTRIL [Suspect]
     Active Substance: CLONAZEPAM
     Dosage: PROGRESSIVELY INCREASED
     Route: 048
     Dates: start: 20140612, end: 201406
  8. ZONEGRAN [Suspect]
     Active Substance: ZONISAMIDE
     Dosage: 50 MG/DAY
     Route: 048
     Dates: start: 20140614, end: 20140614
  9. RIVOTRIL [Suspect]
     Active Substance: CLONAZEPAM
     Indication: EPILEPSY
     Dosage: 12 MG/DAY
     Route: 048
     Dates: start: 201308, end: 201405
  10. ZONEGRAN [Suspect]
     Active Substance: ZONISAMIDE
     Dosage: 150 MG/DAY
     Route: 048
     Dates: start: 20140612, end: 20140612
  11. TEGRETOL LP [Suspect]
     Active Substance: CARBAMAZEPINE
     Indication: EPILEPSY
     Dosage: 800 MG/DAY
     Route: 048
     Dates: start: 201308, end: 201405
  12. TEGRETOL LP [Suspect]
     Active Substance: CARBAMAZEPINE
     Dosage: PROGRESSIVELY REDUCED
     Route: 048
     Dates: start: 201405, end: 201405

REACTIONS (6)
  - Decreased appetite [Not Recovered/Not Resolved]
  - Hyperacusis [Not Recovered/Not Resolved]
  - Asthenia [Not Recovered/Not Resolved]
  - Urinary tract infection [Unknown]
  - Photophobia [Not Recovered/Not Resolved]
  - Tremor [Not Recovered/Not Resolved]

NARRATIVE: CASE EVENT DATE: 201405
